FAERS Safety Report 6058125-3 (Version None)
Quarter: 2009Q1

REPORT INFORMATION
  Report Type: 
  Country: None (occurrence: None)
  Receive Date: 20090128
  Receipt Date: 20090120
  Transmission Date: 20090719
  Serious: Yes (Hospitalization)
  Sender: FDA-Public Use
  Company Number: 2009SP001437

PATIENT
  Age: 61 Year
  Sex: Female

DRUGS (3)
  1. NOXAFIL (POSCONAZOLE) (POSCONAZOLE) [Suspect]
     Indication: PROPHYLAXIS
     Dosage: 800 MG;QD;PO
     Route: 048
     Dates: start: 20080228, end: 20080407
  2. CORDARONE [Suspect]
     Indication: ATRIAL FIBRILLATION
     Dosage: 200 MG; PO
     Route: 048
     Dates: start: 20080118, end: 20080415
  3. CORDARONE [Suspect]
     Indication: ATRIAL FIBRILLATION
     Dosage: 200 MG; PO
     Route: 048
     Dates: start: 20080520, end: 20080601

REACTIONS (2)
  - RECTAL HAEMORRHAGE [None]
  - THROMBOCYTOPENIA [None]
